FAERS Safety Report 9340995 (Version 2)
Quarter: 2013Q2

REPORT INFORMATION
  Report Type: Spontaneous
  Country: JP (occurrence: None)
  Receive Date: 20130529
  Receipt Date: 20130625
  Transmission Date: 20140414
  Serious: Yes (Hospitalization)
  Sender: FDA-Public Use
  Company Number: 0238756

PATIENT
  Age: 45 Year
  Sex: Female

DRUGS (2)
  1. TACHOSIL [Suspect]
     Indication: PROPHYLAXIS
     Dosage: UNK (2 SHEETS OF REGULAR SIZE)
     Dates: start: 20130315
  2. LOXONIN (LOXOPROFEN SODIUM) (TABLETS) [Concomitant]
     Dosage: 3 DOSAGE FORMS (1 DOSAGE FORMS, 3 IN 1 D)
     Dates: start: 20130318, end: 20130319

REACTIONS (5)
  - Biliary fistula [None]
  - Haemoglobin decreased [None]
  - Haematocrit decreased [None]
  - Blood albumin decreased [None]
  - Platelet count decreased [None]
